FAERS Safety Report 6743035-6 (Version None)
Quarter: 2010Q2

REPORT INFORMATION
  Report Type: 
  Country: None (occurrence: None)
  Receive Date: 20100527
  Receipt Date: 20100517
  Transmission Date: 20101027
  Serious: No
  Sender: FDA-Public Use
  Company Number: US-BIOGENIDEC-2010BI017125

PATIENT
  Age: 28 Year
  Sex: Female

DRUGS (2)
  1. TYSABRI [Suspect]
     Indication: MULTIPLE SCLEROSIS
     Route: 042
     Dates: start: 20070418, end: 20070731
  2. TYSABRI [Suspect]
     Route: 042
     Dates: start: 20081017, end: 20100115

REACTIONS (9)
  - AMNESIA [None]
  - ASTHENIA [None]
  - DIPLOPIA [None]
  - INFLUENZA [None]
  - LOSS OF CONTROL OF LEGS [None]
  - SINUS DISORDER [None]
  - SPEECH DISORDER [None]
  - VISION BLURRED [None]
  - VISUAL IMPAIRMENT [None]
